FAERS Safety Report 7497763-8 (Version None)
Quarter: 2011Q2

REPORT INFORMATION
  Report Type: 
  Country: None (occurrence: None)
  Receive Date: 20110524
  Receipt Date: 20110520
  Transmission Date: 20111010
  Serious: Yes (Other)
  Sender: FDA-Public Use
  Company Number: US-ASTRAZENECA-2011SE30734

PATIENT
  Age: 18098 Day

DRUGS (4)
  1. CYMBALTA [Concomitant]
     Dates: start: 20090706
  2. GLYBURIDE [Concomitant]
     Dates: start: 20090706
  3. AVIL [Concomitant]
     Dates: start: 20090706
  4. SEROQUEL [Suspect]
     Route: 048
     Dates: start: 20090706

REACTIONS (3)
  - TYPE 2 DIABETES MELLITUS [None]
  - HYPOGONADISM [None]
  - HIV INFECTION CDC CATEGORY C2 [None]
